FAERS Safety Report 24278972 (Version 1)
Quarter: 2024Q3

REPORT INFORMATION
  Report Type: Spontaneous
  Country: RO (occurrence: RO)
  Receive Date: 20240903
  Receipt Date: 20240903
  Transmission Date: 20241016
  Serious: Yes (Death, Other)
  Sender: BRISTOL MYERS SQUIBB
  Company Number: RO-BRISTOL-MYERS SQUIBB COMPANY-2024-140087

PATIENT
  Age: 50 Year
  Sex: Male

DRUGS (3)
  1. NIVOLUMAB [Suspect]
     Active Substance: NIVOLUMAB
     Indication: Malignant melanoma stage IV
     Dosage: 4 INDUCTION CYCLES
     Dates: start: 20240210, end: 20240710
  2. NIVOLUMAB [Suspect]
     Active Substance: NIVOLUMAB
     Dosage: NIVOLIMAB MONOTHERAPY 240 MG EVERY TWO WEEKS,MAINTENANCE TREATMENT UNTIL DISEASE PROGRESSION OR UNAC
     Dates: start: 20240730
  3. IPILIMUMAB [Suspect]
     Active Substance: IPILIMUMAB
     Indication: Malignant melanoma stage IV
     Dosage: 4 INDUCTION CYCLES
     Dates: start: 20240210, end: 20240710

REACTIONS (1)
  - Death [Fatal]

NARRATIVE: CASE EVENT DATE: 20240801
